FAERS Safety Report 6466637-3 (Version None)
Quarter: 2009Q4

REPORT INFORMATION
  Report Type: 
  Country: None (occurrence: None)
  Receive Date: 20091202
  Receipt Date: 20091119
  Transmission Date: 20100525
  Serious: Yes (Hospitalization, Other)
  Sender: FDA-Public Use
  Company Number: US-PFIZER INC-2009303394

PATIENT
  Sex: Female
  Weight: 61 kg

DRUGS (9)
  1. MEDROL [Suspect]
     Indication: DERMATITIS CONTACT
     Dosage: UNK
     Dates: start: 20090919, end: 20091005
  2. DIPHENHYDRAMINE [Suspect]
     Indication: DERMATITIS CONTACT
     Dosage: UNK
     Route: 048
     Dates: start: 20090918, end: 20090923
  3. BLINDED THERAPY [Suspect]
     Indication: OSTEOPOROSIS PROPHYLAXIS
     Dosage: UNK
     Route: 048
     Dates: start: 20090820
  4. BLINDED THERAPY [Suspect]
     Indication: ENDOMETRIAL HYPERPLASIA
  5. ACTONEL [Concomitant]
     Indication: OSTEOPOROSIS
     Dosage: 35 MG, WEEKLY
     Route: 048
     Dates: start: 20060201
  6. LEXAPRO [Concomitant]
     Indication: DEPRESSION
     Dosage: 10 MG, 1X/DAY
     Route: 048
     Dates: start: 20080701
  7. MULTI-VITAMINS [Concomitant]
     Indication: ROUTINE HEALTH MAINTENANCE
     Dosage: UNK
     Route: 048
     Dates: start: 20050201
  8. LOVAZA [Concomitant]
     Indication: ROUTINE HEALTH MAINTENANCE
     Dosage: 2 TABLETS DAILY
     Route: 048
     Dates: start: 20050101
  9. CALTRATE + D [Concomitant]
     Indication: ROUTINE HEALTH MAINTENANCE
     Dosage: 600/400 MG
     Route: 048
     Dates: start: 20090820

REACTIONS (2)
  - BASAL CELL CARCINOMA [None]
  - DEHYDRATION [None]
